FAERS Safety Report 7706751-5 (Version None)
Quarter: 2011Q3

REPORT INFORMATION
  Report Type: 
  Country: None (occurrence: None)
  Receive Date: 20110824
  Receipt Date: 20110812
  Transmission Date: 20111222
  Serious: Yes (Other)
  Sender: FDA-Public Use
  Company Number: US-ROCHE-766855

PATIENT
  Sex: Female
  Weight: 61.2 kg

DRUGS (1)
  1. ACCUTANE [Suspect]
     Route: 065
     Dates: start: 19960101, end: 19960701

REACTIONS (4)
  - CROHN'S DISEASE [None]
  - COLITIS [None]
  - BENIGN SMALL INTESTINAL NEOPLASM [None]
  - INJURY [None]
